FAERS Safety Report 21837138 (Version 2)
Quarter: 2023Q1

REPORT INFORMATION
  Report Type: Spontaneous
  Country: HU (occurrence: HU)
  Receive Date: 20230109
  Receipt Date: 20230117
  Transmission Date: 20230418
  Serious: No
  Sender: FDA-Public Use
  Company Number: ALC2023HU000473

PATIENT

DRUGS (3)
  1. SIMBRINZA [Suspect]
     Active Substance: BRIMONIDINE TARTRATE\BRINZOLAMIDE
     Indication: Glaucoma
     Dosage: UNK (10 MG/ML AND 2 MG/ML);
     Route: 065
     Dates: start: 2022
  2. RASAGILINE [Suspect]
     Active Substance: RASAGILINE
     Indication: Parkinson^s disease
     Dosage: UNK
     Route: 065
     Dates: start: 2013
  3. BENSERAZIDE HYDROCHLORIDE\LEVODOPA [Concomitant]
     Active Substance: BENSERAZIDE HYDROCHLORIDE\LEVODOPA
     Indication: Product used for unknown indication
     Dosage: UNK
     Route: 065
     Dates: start: 2013

REACTIONS (3)
  - Blood pressure abnormal [Unknown]
  - Photophobia [Unknown]
  - Dizziness [Unknown]

NARRATIVE: CASE EVENT DATE: 20221201
